FAERS Safety Report 9452716 (Version 1)
Quarter: 2013Q3

REPORT INFORMATION
  Report Type: Report from Study
  Country: AR (occurrence: AR)
  Receive Date: 20130812
  Receipt Date: 20130812
  Transmission Date: 20140515
  Serious: Yes (Hospitalization)
  Sender: FDA-Public Use
  Company Number: PHHY2013AR082620

PATIENT
  Age: 56 Year
  Sex: Female

DRUGS (3)
  1. ONBREZ [Suspect]
     Indication: PULMONARY FIBROSIS
     Dosage: 150 UG, QD
  2. ONBREZ [Suspect]
     Indication: OFF LABEL USE
  3. ACTEMRA [Concomitant]
     Dosage: UNK UKN, UNK
     Dates: end: 20130614

REACTIONS (2)
  - Laryngeal oedema [Recovering/Resolving]
  - Laryngospasm [Recovering/Resolving]
